FAERS Safety Report 14274981 (Version 1)
Quarter: 2017Q4

REPORT INFORMATION
  Report Type: Spontaneous
  Country: US (occurrence: US)
  Receive Date: 20171212
  Receipt Date: 20171212
  Transmission Date: 20180321
  Serious: No
  Sender: FDA-Public Use
  Company Number: US-GLAXOSMITHKLINE-US2017189179

PATIENT
  Age: 22 Year
  Sex: Female

DRUGS (2)
  1. LAMICTAL XR [Suspect]
     Active Substance: LAMOTRIGINE
     Dosage: 650 MG, QD (600MG IN AM; 50MG AT NIGHT)
  2. LAMICTAL XR [Suspect]
     Active Substance: LAMOTRIGINE
     Indication: EPILEPSY
     Dosage: 1000 MG, BID
     Route: 048
     Dates: start: 2006

REACTIONS (4)
  - Contusion [Not Recovered/Not Resolved]
  - Condition aggravated [Unknown]
  - Vaginal infection [Not Recovered/Not Resolved]
  - Overdose [Unknown]

NARRATIVE: CASE EVENT DATE: 201703
